FAERS Safety Report 8331929-X (Version None)
Quarter: 2012Q2

REPORT INFORMATION
  Report Type: 
  Country: None (occurrence: None)
  Receive Date: 20120502
  Receipt Date: 20120420
  Transmission Date: 20120825
  Serious: Yes (Hospitalization)
  Sender: FDA-Public Use
  Company Number: US-ELI_LILLY_AND_COMPANY-US201105001663

PATIENT
  Sex: Female

DRUGS (20)
  1. TRAMADOL HCL [Concomitant]
     Dosage: 50 MG, UNK
  2. VITAMIN B-12 [Concomitant]
     Dosage: UNK, QD
  3. VITAMIN D [Concomitant]
     Dosage: 200 IU, QD
  4. CARDIZEM [Concomitant]
     Dosage: 180 MG, UNK
  5. FISH OIL [Concomitant]
     Dosage: UNK, QD
  6. VANCOMYCIN [Concomitant]
     Dosage: 1 MG, UNK
  7. FORTEO [Suspect]
     Indication: OSTEOPOROSIS
     Dosage: 20 UG, QD
     Route: 058
     Dates: start: 20110325
  8. FORTEO [Suspect]
     Dosage: 20 UG, QD
     Route: 058
     Dates: end: 20110901
  9. FORTEO [Suspect]
     Dosage: 20 UG, QD
     Route: 058
  10. HYDROCHLOROTHIAZIDE [Concomitant]
     Dosage: 12.5 MG, UNK
  11. FLORASTOR [Concomitant]
     Dosage: 250 MG, UNK
  12. CALCIUM [Concomitant]
     Dosage: UNK, QD
  13. FORTEO [Suspect]
     Dosage: 20 UG, QD
     Route: 058
  14. FLAGYL [Concomitant]
     Dosage: 250 MG, UNK
  15. VITAMIN TAB [Concomitant]
     Dosage: UNK, QD
  16. VITAMIN E [Concomitant]
     Dosage: UNK, QD
  17. OMEPRAZOLE [Concomitant]
     Dosage: UNK, QD
  18. VITAMIN C [Concomitant]
     Dosage: UNK, QD
  19. CHOLESTYRAMINE [Concomitant]
     Dosage: 4 MG, UNK
  20. TRAZODONE HCL [Concomitant]
     Dosage: 100 MG, UNK

REACTIONS (14)
  - HOSPITALISATION [None]
  - DYSPNOEA [None]
  - ASTHENIA [None]
  - DYSPHONIA [None]
  - SLUGGISHNESS [None]
  - CARDIAC DISORDER [None]
  - BACK PAIN [None]
  - NASOPHARYNGITIS [None]
  - FATIGUE [None]
  - CLOSTRIDIAL INFECTION [None]
  - FEELING JITTERY [None]
  - DIZZINESS [None]
  - DIZZINESS POSTURAL [None]
  - DAYDREAMING [None]
